FAERS Safety Report 25866951 (Version 1)
Quarter: 2025Q4

REPORT INFORMATION
  Report Type: Report from Study
  Country: US (occurrence: US)
  Receive Date: 20251001
  Receipt Date: 20251001
  Transmission Date: 20260118
  Serious: Yes (Hospitalization, Other)
  Sender: JAZZ
  Company Number: US-JAZZ PHARMACEUTICALS-2025-US-022791

PATIENT

DRUGS (2)
  1. XYWAV [Suspect]
     Active Substance: CALCIUM OXYBATE\MAGNESIUM OXYBATE\POTASSIUM OXYBATE\SODIUM OXYBATE
     Indication: Hypersomnia
     Dosage: UNK
  2. XYWAV [Suspect]
     Active Substance: CALCIUM OXYBATE\MAGNESIUM OXYBATE\POTASSIUM OXYBATE\SODIUM OXYBATE
     Dosage: 4G/3.5G NIGHTLY

REACTIONS (13)
  - Suicidal ideation [Unknown]
  - Hospitalisation [Unknown]
  - Sleep disorder [Unknown]
  - Post-acute COVID-19 syndrome [Unknown]
  - Dysarthria [Unknown]
  - Gait disturbance [Unknown]
  - Retching [Unknown]
  - Photophobia [Unknown]
  - Withdrawal syndrome [Unknown]
  - Hyperacusis [Unknown]
  - Panic attack [Unknown]
  - Weight decreased [Unknown]
  - Insomnia [Unknown]

NARRATIVE: CASE EVENT DATE: 20231101
